FAERS Safety Report 25111354 (Version 1)
Quarter: 2025Q1

REPORT INFORMATION
  Report Type: Spontaneous
  Country: GB (occurrence: GB)
  Receive Date: 20250324
  Receipt Date: 20250324
  Transmission Date: 20250408
  Serious: Yes (Other)
  Sender: SAMSUNG BIOEPIS
  Company Number: GB-SAMSUNG BIOEPIS-SB-2025-09620

PATIENT
  Age: 3 Year
  Sex: Female

DRUGS (3)
  1. INFLIXIMAB [Suspect]
     Active Substance: INFLIXIMAB
     Indication: Uveitis
  2. INFLIXIMAB [Suspect]
     Active Substance: INFLIXIMAB
  3. METHYLPREDNISOLONE [Suspect]
     Active Substance: METHYLPREDNISOLONE
     Indication: Uveitis
     Route: 042

REACTIONS (5)
  - Cataract [Unknown]
  - Drug ineffective for unapproved indication [Unknown]
  - Poor venous access [Unknown]
  - Off label use [Unknown]
  - Product use issue [Unknown]
